FAERS Safety Report 20905519 (Version 1)
Quarter: 2022Q2

REPORT INFORMATION
  Report Type: Spontaneous
  Country: US (occurrence: None)
  Receive Date: 20220601
  Receipt Date: 20220601
  Transmission Date: 20220721
  Serious: Yes (Hospitalization)
  Sender: FDA-Public Use
  Company Number: None

PATIENT
  Age: 84 Year
  Sex: Female
  Weight: 67.99 kg

DRUGS (24)
  1. RETACRIT [Suspect]
     Active Substance: EPOETIN ALFA-EPBX
     Dosage: OTHER QUANTITY : 40,000 UNITS;?FREQUENCY : WEEKLY;?
     Route: 058
  2. XGEVA [Suspect]
     Active Substance: DENOSUMAB
     Dosage: FREQUENCY : MONTHLY;?
     Route: 058
  3. ALLOPURINOL [Concomitant]
     Active Substance: ALLOPURINOL
  4. BISOPROLOL FUMARATE [Concomitant]
     Active Substance: BISOPROLOL FUMARATE
  5. CARTIA XT [Concomitant]
     Active Substance: DILTIAZEM HYDROCHLORIDE
  6. SERTRALINE [Concomitant]
     Active Substance: SERTRALINE HYDROCHLORIDE
  7. TRAMDOL [Concomitant]
  8. TRAZODONE [Concomitant]
     Active Substance: TRAZODONE HYDROCHLORIDE
  9. VITAMIN D3 [Concomitant]
     Active Substance: CHOLECALCIFEROL
  10. WARFARIN [Concomitant]
     Active Substance: WARFARIN
  11. CLARITIN [Concomitant]
  12. COLACE [Concomitant]
     Active Substance: DOCUSATE SODIUM
  13. LUTEIN [Concomitant]
     Active Substance: LUTEIN
  14. METAMUCIL [Concomitant]
     Active Substance: PLANTAGO SEED
  15. VITAMINS [Concomitant]
     Active Substance: VITAMINS
  16. ARANESP [Concomitant]
     Active Substance: DARBEPOETIN ALFA
  17. DEXAMETHASONE [Concomitant]
     Active Substance: DEXAMETHASONE
  18. FUROSEMIDE [Concomitant]
     Active Substance: FUROSEMIDE
  19. LEVOTHYROXINE SODIUM [Concomitant]
     Active Substance: LEVOTHYROXINE SODIUM
  20. LOSARTAN POTASSIUM [Concomitant]
     Active Substance: LOSARTAN POTASSIUM
  21. MAGNESIUM [Concomitant]
     Active Substance: MAGNESIUM
  22. PANTOPRAZOLE [Concomitant]
     Active Substance: PANTOPRAZOLE
  23. PRAMIPEXOLE [Concomitant]
     Active Substance: PRAMIPEXOLE
  24. PRAVASTATIN [Concomitant]
     Active Substance: PRAVASTATIN

REACTIONS (2)
  - Spinal compression fracture [None]
  - Nosocomial infection [None]
